FAERS Safety Report 25813179 (Version 1)
Quarter: 2025Q3

REPORT INFORMATION
  Report Type: Spontaneous
  Country: US (occurrence: US)
  Receive Date: 20250917
  Receipt Date: 20250917
  Transmission Date: 20251021
  Serious: Yes (Hospitalization, Congenital Anomaly)
  Sender: TEVA
  Company Number: US-TEVA-VS-3371537

PATIENT

DRUGS (5)
  1. PREDNISONE [Suspect]
     Active Substance: PREDNISONE
     Indication: Drug-induced liver injury
     Route: 064
  2. PREDNISONE [Suspect]
     Active Substance: PREDNISONE
     Indication: Drug-induced liver injury
     Route: 064
  3. PREDNISONE [Suspect]
     Active Substance: PREDNISONE
     Indication: Drug-induced liver injury
     Route: 064
  4. IMMUNE GLOBULIN NOS [Suspect]
     Active Substance: IMMUNE GLOBULIN NOS
     Indication: Gestational alloimmune liver disease
     Dosage: DOSAGE: 1 G/KG 1G/KG AT 20 WEEKS AT WEEKLY INTERVALS
     Route: 064
  5. IMMUNE GLOBULIN NOS [Suspect]
     Active Substance: IMMUNE GLOBULIN NOS
     Indication: Gestational alloimmune liver disease
     Route: 064

REACTIONS (3)
  - Adrenal insufficiency neonatal [Unknown]
  - Drug ineffective [Unknown]
  - Foetal exposure during pregnancy [Unknown]
